FAERS Safety Report 7988449-1 (Version None)
Quarter: 2011Q4

REPORT INFORMATION
  Report Type: 
  Country: None (occurrence: None)
  Receive Date: 20111216
  Receipt Date: 20111215
  Transmission Date: 20120403
  Serious: No
  Sender: FDA-Public Use
  Company Number: US-PFIZER INC-2011306037

PATIENT
  Sex: Female
  Weight: 54 kg

DRUGS (5)
  1. PREMARIN [Suspect]
     Dosage: UNK
     Dates: start: 19740101
  2. PREMARIN [Suspect]
     Dosage: UNK
  3. PREMARIN [Suspect]
     Dosage: 0.3 MG, DAILY
  4. VITAMIN D [Concomitant]
     Dosage: UNK, WEEKLY
  5. CITRACAL [Concomitant]
     Dosage: UNK, DAILY

REACTIONS (5)
  - BALANCE DISORDER [None]
  - NIGHT SWEATS [None]
  - WRONG TECHNIQUE IN DRUG USAGE PROCESS [None]
  - FEELING ABNORMAL [None]
  - AGGRESSION [None]
